FAERS Safety Report 20779878 (Version 1)
Quarter: 2022Q2

REPORT INFORMATION
  Report Type: Spontaneous
  Country: US (occurrence: US)
  Receive Date: 20220503
  Receipt Date: 20220503
  Transmission Date: 20220721
  Serious: Yes (Other)
  Sender: FDA-Public Use
  Company Number: US-PFIZER INC-202200132444

PATIENT
  Age: 87 Year
  Sex: Female

DRUGS (1)
  1. DISOPYRAMIDE PHOSPHATE [Suspect]
     Active Substance: DISOPYRAMIDE PHOSPHATE
     Indication: Cardiac disorder
     Dosage: 100 MG, 3X/DAY (100 MG THREE TIMES A DAY)

REACTIONS (3)
  - Product dose omission issue [Unknown]
  - Off label use [Unknown]
  - Drug effect less than expected [Unknown]
